FAERS Safety Report 4338131-7 (Version None)
Quarter: 2004Q2

REPORT INFORMATION
  Report Type: 
  Country: None (occurrence: None)
  Receive Date: 20040412
  Receipt Date: 20040412
  Transmission Date: 20050107
  Serious: Yes (Other)
  Sender: FDA-Public Use
  Company Number: None

PATIENT
  Age: 49 Year
  Sex: Female

DRUGS (1)
  1. WELLBUTRIN [Suspect]
     Indication: DEPRESSION
     Dosage: 150 MG X 2DAILY ORAL
     Route: 048
     Dates: start: 20030109, end: 20030127

REACTIONS (2)
  - PRURITUS [None]
  - SKIN LESION [None]
